FAERS Safety Report 18432196 (Version 2)
Quarter: 2020Q4

REPORT INFORMATION
  Report Type: Report from Study
  Country: CA (occurrence: CA)
  Receive Date: 20201027
  Receipt Date: 20201218
  Transmission Date: 20210114
  Serious: Yes (Hospitalization, Other)
  Sender: FDA-Public Use
  Company Number: CA-JNJFOC-20201025947

PATIENT
  Age: 69 Year
  Sex: Female
  Weight: 75.9 kg

DRUGS (1)
  1. REMICADE [Suspect]
     Active Substance: INFLIXIMAB
     Indication: PSORIATIC ARTHROPATHY
     Dosage: LAST INFUSION ON 14-OCT-2020
     Route: 042
     Dates: start: 20080813

REACTIONS (11)
  - Sensation of foreign body [Recovered/Resolved]
  - Peripheral coldness [Recovered/Resolved]
  - Exposure during pregnancy [Unknown]
  - Dyspnoea [Recovering/Resolving]
  - Rhonchi [Recovered/Resolved]
  - Paraesthesia [Recovered/Resolved]
  - Dysphagia [Recovered/Resolved]
  - Oxygen saturation decreased [Recovered/Resolved]
  - Infusion related reaction [Recovered/Resolved]
  - Anxiety [Recovered/Resolved]
  - Dyspnoea [Recovered/Resolved]

NARRATIVE: CASE EVENT DATE: 20201014
